FAERS Safety Report 8729769 (Version 2)
Quarter: 2012Q4

REPORT INFORMATION
  Report Type: 
  Country: CA (occurrence: CA)
  Receive Date: 20120817
  Receipt Date: 20120912
  Transmission Date: 20130627
  Serious: Yes (Other)
  Sender: FDA-Public Use
  Company Number: CA-PFIZER INC-2012195753

PATIENT
  Age: 60 Year
  Sex: Female
  Weight: 70 kg

DRUGS (9)
  1. LYRICA [Suspect]
     Indication: FIBROMYALGIA
     Dosage: 75 mg, 1x/day
     Route: 048
     Dates: start: 201009
  2. LYRICA [Suspect]
     Indication: GASTRIC DISORDER
     Dosage: 75 mg, 2x/day
     Route: 048
  3. LYRICA [Suspect]
     Dosage: 375 mg, 1x/day (two 75mg caps/morning and three 75mg caps/night)
     Route: 048
     Dates: start: 201106
  4. SEROQUEL [Concomitant]
     Indication: COGNITIVE DISORDER
     Dosage: 50 mg, 1x/day
     Route: 048
     Dates: start: 201102
  5. COVERSYL PLUS [Concomitant]
     Indication: BLOOD PRESSURE
     Dosage: 4/1.25mg once a day
     Route: 048
     Dates: start: 201009
  6. CYMBALTA [Concomitant]
     Indication: FIBROMYALGIA
     Dosage: 60 mg, 1x/day
     Route: 048
     Dates: start: 201009
  7. CELEBREX [Concomitant]
     Dosage: 200 mg, UNK
  8. DEXILANT DR [Concomitant]
     Indication: ABDOMINAL DISCOMFORT
     Dosage: 60 mg, 1x/day
     Route: 048
     Dates: start: 201201
  9. DEXILANT DR [Concomitant]
     Indication: GASTROOESOPHAGEAL REFLUX DISEASE

REACTIONS (2)
  - Hyporeflexia [Not Recovered/Not Resolved]
  - Bradyphrenia [Not Recovered/Not Resolved]
